FAERS Safety Report 19078414 (Version 1)
Quarter: 2021Q1

REPORT INFORMATION
  Report Type: Spontaneous
  Country: BG (occurrence: BG)
  Receive Date: 20210331
  Receipt Date: 20210331
  Transmission Date: 20210420
  Serious: Yes (Other)
  Sender: FDA-Public Use
  Company Number: BG-BAYER-2021-110014

PATIENT
  Age: 63 Year

DRUGS (3)
  1. SORAFENIB (RAF KINASE INHIBITOR) [Suspect]
     Active Substance: SORAFENIB
     Indication: HEPATOCELLULAR CARCINOMA
     Dosage: 400 MG, BID
     Dates: start: 20140623
  2. HEPATOPROTECT [Concomitant]
     Dosage: UNK
  3. STIVARGA [Suspect]
     Active Substance: REGORAFENIB
     Indication: HEPATOCELLULAR CARCINOMA
     Dosage: UNK

REACTIONS (14)
  - Metastases to lung [None]
  - Metastases to retroperitoneum [None]
  - Hepatocellular carcinoma [None]
  - Rash [Recovering/Resolving]
  - Metastases to lung [None]
  - Metastases to liver [None]
  - Lymphadenopathy mediastinal [None]
  - Hilar lymphadenopathy [None]
  - Metastases to soft tissue [None]
  - Hilar lymphadenopathy [None]
  - Metastases to retroperitoneum [None]
  - Hilar lymphadenopathy [None]
  - Blood pressure fluctuation [None]
  - Metastases to peritoneum [None]

NARRATIVE: CASE EVENT DATE: 201609
